FAERS Safety Report 24766272 (Version 1)
Quarter: 2024Q4

REPORT INFORMATION
  Report Type: Spontaneous
  Country: US (occurrence: None)
  Receive Date: 20241220
  Receipt Date: 20241220
  Transmission Date: 20250115
  Serious: Yes (Other)
  Sender: Public
  Company Number: None

PATIENT
  Age: 66 Year
  Sex: Male
  Weight: 99 kg

DRUGS (1)
  1. MOUNJARO [Suspect]
     Active Substance: TIRZEPATIDE
     Indication: Type 2 diabetes mellitus
     Dates: start: 20241216, end: 20241216

REACTIONS (4)
  - Vomiting [None]
  - Gastrointestinal disorder [None]
  - Impaired work ability [None]
  - Hypophagia [None]

NARRATIVE: CASE EVENT DATE: 20241216
